FAERS Safety Report 9136113 (Version 1)
Quarter: 2013Q1

REPORT INFORMATION
  Report Type: Spontaneous
  Country: US (occurrence: US)
  Receive Date: 20130304
  Receipt Date: 20130304
  Transmission Date: 20140127
  Serious: No
  Sender: FDA-Public Use
  Company Number: US-ABBOTT-12P-163-0968328-00

PATIENT
  Sex: Male
  Weight: 90.8 kg

DRUGS (14)
  1. ANDROGEL 1% [Suspect]
     Indication: BLOOD TESTOSTERONE DECREASED
     Route: 061
     Dates: start: 201010, end: 2011
  2. ANDROGEL 1% [Suspect]
     Route: 061
     Dates: start: 2011, end: 2011
  3. ANDROGEL 1.62% [Suspect]
     Indication: BLOOD TESTOSTERONE DECREASED
     Route: 061
     Dates: start: 2011, end: 201208
  4. ANDROGEL 1.62% [Suspect]
     Route: 061
     Dates: start: 201208
  5. ANDROGEL 1.62% [Suspect]
     Route: 061
     Dates: start: 2011, end: 201208
  6. NIASPAN [Concomitant]
     Indication: HYPERLIPIDAEMIA
  7. METANX [Concomitant]
     Indication: SUPPLEMENTATION THERAPY
  8. LISINOPRIL [Concomitant]
     Indication: BLOOD PRESSURE
  9. LANZAPROZOLE [Concomitant]
     Indication: GASTROOESOPHAGEAL REFLUX DISEASE
  10. XANAX [Concomitant]
     Indication: ANXIETY
  11. CYMBALTA [Concomitant]
     Indication: ANXIETY
  12. CYMBALTA [Concomitant]
     Indication: NEUROPATHY PERIPHERAL
  13. NOVOLOG [Concomitant]
     Indication: DIABETES MELLITUS
  14. LANTUS [Concomitant]
     Indication: DIABETES MELLITUS

REACTIONS (2)
  - Incorrect drug administration duration [Unknown]
  - Blood testosterone decreased [Not Recovered/Not Resolved]
